FAERS Safety Report 23981028 (Version 1)
Quarter: 2024Q2

REPORT INFORMATION
  Report Type: Spontaneous
  Country: US (occurrence: US)
  Receive Date: 20240617
  Receipt Date: 20240617
  Transmission Date: 20240716
  Serious: Yes (Hospitalization, Other)
  Sender: FDA-Public Use
  Company Number: US-ALEMBIC PHARMACUETICALS LIMITED-2024SCAL000831

PATIENT

DRUGS (8)
  1. DULOXETINE HYDROCHLORIDE [Interacting]
     Active Substance: DULOXETINE HYDROCHLORIDE
     Indication: Major depression
     Dosage: 60 MILLIGRAM, BID
     Route: 065
  2. DULOXETINE HYDROCHLORIDE [Interacting]
     Active Substance: DULOXETINE HYDROCHLORIDE
     Dosage: 30 MILLIGRAM, BID
     Route: 065
  3. NORTRIPTYLINE [Interacting]
     Active Substance: NORTRIPTYLINE
     Indication: Major depression
     Dosage: 150 MILLIGRAM, QD
     Route: 065
  4. NORTRIPTYLINE [Interacting]
     Active Substance: NORTRIPTYLINE
     Dosage: 75 MILLIGRAM, QD
     Route: 065
  5. NORTRIPTYLINE [Interacting]
     Active Substance: NORTRIPTYLINE
     Dosage: 50 MILLIGRAM, QD
     Route: 065
  6. BUSPIRONE [Interacting]
     Active Substance: BUSPIRONE HYDROCHLORIDE
     Indication: Anxiety
     Dosage: 5 MILLIGRAM, TID
     Route: 065
  7. METOCLOPRAMIDE [Interacting]
     Active Substance: METOCLOPRAMIDE
     Indication: Nausea
     Dosage: 10 MILLIGRAM, TID
     Route: 065
  8. METOCLOPRAMIDE [Interacting]
     Active Substance: METOCLOPRAMIDE
     Indication: Vomiting
     Dosage: 10 MILLIGRAM, EVERY 8 HOURS
     Route: 042

REACTIONS (18)
  - Withdrawal syndrome [Recovered/Resolved]
  - Muscle rigidity [Recovered/Resolved]
  - Oculogyric crisis [Recovered/Resolved]
  - Extrapyramidal disorder [Recovered/Resolved]
  - Serotonin syndrome [Recovered/Resolved]
  - Consciousness fluctuating [Recovered/Resolved]
  - Delirium [Recovered/Resolved]
  - Dystonia [Recovered/Resolved]
  - Tremor [Recovered/Resolved]
  - Agitation [Recovered/Resolved]
  - Anxiety [Recovered/Resolved]
  - Disturbance in attention [Recovered/Resolved]
  - Clonus [Recovered/Resolved]
  - Disorganised speech [Recovered/Resolved]
  - Fall [Recovered/Resolved]
  - Hyperreflexia [Recovered/Resolved]
  - Drug interaction [Recovered/Resolved]
  - Multiple drug therapy [Unknown]
